FAERS Safety Report 10078340 (Version 1)
Quarter: 2014Q1

REPORT INFORMATION
  Report Type: Spontaneous
  Country: GB (occurrence: None)
  Receive Date: 20140324
  Receipt Date: 20140324
  Transmission Date: 20141002
  Serious: Yes (Other)
  Sender: FDA-Public Use
  Company Number: AUR-APL-2014-02167

PATIENT
  Age: 64 Year
  Sex: Female

DRUGS (1)
  1. CLOPIDOGREL (CLOPIDOGREL) [Suspect]
     Indication: TRANSIENT ISCHAEMIC ATTACK
     Dates: start: 201309

REACTIONS (2)
  - Transient ischaemic attack [None]
  - Product substitution issue [None]
